FAERS Safety Report 9721145 (Version 3)
Quarter: 2014Q1

REPORT INFORMATION
  Report Type: Report from Study
  Country: FR (occurrence: FR)
  Receive Date: 20131129
  Receipt Date: 20140303
  Transmission Date: 20141002
  Serious: Yes (Death, Life-Threatening, Hospitalization, Other)
  Sender: FDA-Public Use
  Company Number: FR-GILEAD-2013-0088657

PATIENT
  Age: 50 Year
  Sex: Male
  Weight: 61 kg

DRUGS (11)
  1. SOFOSBUVIR [Suspect]
     Indication: HEPATITIS C
     Dosage: 400 MG, QD
     Route: 048
     Dates: start: 20130916, end: 20131118
  2. RIBAVIRIN [Suspect]
     Indication: HEPATITIS C
     Dosage: 400 MG, UNK
     Route: 048
     Dates: start: 20130916, end: 20131020
  3. TRUVADA [Suspect]
     Indication: HIV INFECTION
     Dosage: UNK
     Route: 048
     Dates: end: 20131118
  4. DACLATASVIR [Suspect]
     Indication: HEPATITIS C
     Dosage: 60 MG, QD
     Route: 048
     Dates: start: 20131024, end: 20131118
  5. ISENTRESS [Suspect]
     Indication: HIV INFECTION
     Dosage: 2 DF, UNK
     Route: 048
     Dates: start: 20131024, end: 20131118
  6. ERYTHROPOIETIN [Concomitant]
     Indication: ANAEMIA
     Dosage: UNK
     Dates: end: 20131028
  7. CELLCEPT                           /01275102/ [Concomitant]
     Dosage: UNK
     Dates: end: 20131028
  8. NEORAL [Concomitant]
     Dosage: UNK
     Dates: end: 20131028
  9. KALETRA [Concomitant]
     Dosage: UNK
     Dates: end: 20131020
  10. ARIXTRA [Concomitant]
     Indication: PORTAL VEIN THROMBOSIS
     Dosage: UNK
     Dates: start: 201211, end: 20131028
  11. NORFLOXACIN [Concomitant]
     Indication: PROPHYLAXIS
     Dosage: UNK
     Dates: start: 201308, end: 20131028

REACTIONS (3)
  - Cardiac failure acute [Fatal]
  - Pulmonary arterial hypertension [Fatal]
  - Cardiomyopathy [Fatal]
